FAERS Safety Report 10084502 (Version 2)
Quarter: 2014Q2

REPORT INFORMATION
  Report Type: Spontaneous
  Country: NL (occurrence: NL)
  Receive Date: 20140417
  Receipt Date: 20140417
  Transmission Date: 20141212
  Serious: Yes (Other)
  Sender: FDA-Public Use
  Company Number: PHHY2014NL033483

PATIENT
  Sex: Male

DRUGS (2)
  1. FORADIL [Suspect]
     Indication: ASTHMA
     Dosage: 12 UG/DO
     Route: 055
     Dates: start: 20040517
  2. TAMSULOSIN HCL [Concomitant]
     Dosage: UNK
     Dates: start: 20140129

REACTIONS (1)
  - Prostatic specific antigen increased [Unknown]
